FAERS Safety Report 15932740 (Version 1)
Quarter: 2019Q1

REPORT INFORMATION
  Report Type: Spontaneous
  Country: US (occurrence: US)
  Receive Date: 20190207
  Receipt Date: 20190207
  Transmission Date: 20190417
  Serious: Yes (Hospitalization)
  Sender: FDA-Public Use
  Company Number: US-JNJFOC-20190203830

PATIENT
  Age: 52 Year
  Sex: Male

DRUGS (1)
  1. INVOKANA [Suspect]
     Active Substance: CANAGLIFLOZIN
     Indication: TYPE 2 DIABETES MELLITUS
     Route: 048
     Dates: start: 20150424

REACTIONS (7)
  - Metatarsal excision [Unknown]
  - Gangrene [Recovering/Resolving]
  - Osteomyelitis [Recovering/Resolving]
  - Localised infection [Recovering/Resolving]
  - Skin ulcer [Recovering/Resolving]
  - Cellulitis [Recovering/Resolving]
  - Toe amputation [Unknown]

NARRATIVE: CASE EVENT DATE: 201609
